FAERS Safety Report 10775705 (Version 1)
Quarter: 2015Q1

REPORT INFORMATION
  Report Type: Spontaneous
  Country: US (occurrence: None)
  Receive Date: 20150205
  Receipt Date: 20150205
  Transmission Date: 20150721
  Serious: Yes (Hospitalization)
  Sender: FDA-Public Use
  Company Number: 201501141

PATIENT
  Age: 51 Year
  Sex: Male

DRUGS (3)
  1. TESTIM [Suspect]
     Active Substance: TESTOSTERONE
     Indication: BLOOD TESTOSTERONE DECREASED
     Route: 062
     Dates: start: 20120307, end: 20120719
  2. AXIRON [Suspect]
     Active Substance: TESTOSTERONE
     Indication: BLOOD TESTOSTERONE DECREASED
     Dates: start: 20120719, end: 201211
  3. ANDROGEL [Suspect]
     Active Substance: TESTOSTERONE
     Dates: start: 201211, end: 20130128

REACTIONS (6)
  - Family stress [None]
  - Impaired work ability [None]
  - Economic problem [None]
  - Cerebrovascular accident [None]
  - Pain [None]
  - Anxiety [None]

NARRATIVE: CASE EVENT DATE: 20130128
